FAERS Safety Report 10380244 (Version 2)
Quarter: 2015Q2

REPORT INFORMATION
  Report Type: Spontaneous
  Country: CH (occurrence: CH)
  Receive Date: 20140813
  Receipt Date: 20150626
  Transmission Date: 20150821
  Serious: Yes (Other)
  Sender: FDA-Public Use
  Company Number: CH-UCBSA-2014008359

PATIENT
  Age: 29 Year
  Sex: Male
  Weight: 66.4 kg

DRUGS (5)
  1. KEPPRA [Interacting]
     Active Substance: LEVETIRACETAM
     Indication: GENERALISED TONIC-CLONIC SEIZURE
     Dosage: 500 MG, 2X/DAY (BID)
     Route: 048
     Dates: start: 20110130, end: 20131216
  2. TEMODAL [Interacting]
     Active Substance: TEMOZOLOMIDE
     Indication: OLIGOASTROCYTOMA
     Dosage: UNKNOWN DOSE
     Route: 048
     Dates: start: 20140114
  3. KEPPRA [Interacting]
     Active Substance: LEVETIRACETAM
     Dosage: 1000 MG, 2X/DAY (BID)
     Route: 048
     Dates: start: 20131217
  4. URBANYL [Concomitant]
     Active Substance: CLOBAZAM
     Indication: GENERALISED TONIC-CLONIC SEIZURE
     Dosage: 10 MG, ONCE DAILY (QD)
     Route: 048
     Dates: start: 20131217
  5. ORFIRIL [Suspect]
     Active Substance: VALPROIC ACID
     Indication: GENERALISED TONIC-CLONIC SEIZURE
     Dosage: 500 MG, 2X/DAY (BID)
     Route: 048
     Dates: start: 20131217

REACTIONS (2)
  - Drug interaction [Unknown]
  - Thrombocytopenia [Unknown]

NARRATIVE: CASE EVENT DATE: 20140114
